FAERS Safety Report 20125423 (Version 2)
Quarter: 2022Q1

REPORT INFORMATION
  Report Type: Other
  Country: JP (occurrence: None)
  Receive Date: 20211129
  Receipt Date: 20220202
  Transmission Date: 20220424
  Serious: Yes (Other)
  Sender: FDA-Public Use
  Company Number: JP-ROCHE-2967983

PATIENT
  Age: 77 Year
  Sex: Female

DRUGS (5)
  1. BEVACIZUMAB [Suspect]
     Active Substance: BEVACIZUMAB
     Indication: Colon cancer
     Route: 041
  2. LEVOLEUCOVORIN CALCIUM [Suspect]
     Active Substance: LEVOLEUCOVORIN CALCIUM
     Indication: Colon cancer
     Route: 041
  3. FLUOROURACIL [Suspect]
     Active Substance: FLUOROURACIL
     Indication: Colon cancer
     Dosage: ON DAY 1; BOLUS
     Route: 065
  4. FLUOROURACIL [Suspect]
     Active Substance: FLUOROURACIL
     Dosage: 46-HOUR CONTINUOUS INFUSION AFTER BOLUS 5-FLUOROURACIL
     Route: 065
  5. IRINOTECAN [Suspect]
     Active Substance: IRINOTECAN
     Indication: Colon cancer
     Route: 041

REACTIONS (2)
  - Dysphonia [Recovering/Resolving]
  - Laryngeal oedema [Recovering/Resolving]
